FAERS Safety Report 20346031 (Version 2)
Quarter: 2022Q1

REPORT INFORMATION
  Report Type: Spontaneous
  Country: NL (occurrence: NL)
  Receive Date: 20220118
  Receipt Date: 20220120
  Transmission Date: 20220424
  Serious: Yes (Disabling)
  Sender: FDA-Public Use
  Company Number: None

PATIENT
  Sex: Male
  Weight: 87 kg

DRUGS (3)
  1. ATORVASTATIN [Suspect]
     Active Substance: ATORVASTATIN
     Indication: Arrhythmia
     Dosage: 1 DOSAGE FORMS DAILY; 1X DAILY,ATORVASTATINE TABLET 20MG / BRAND NAME NOT SPECIFIED,THERAPY START DA
     Route: 065
  2. ATORVASTATIN [Suspect]
     Active Substance: ATORVASTATIN
     Indication: Hypercholesterolaemia
  3. CLOPIDOGREL [Concomitant]
     Active Substance: CLOPIDOGREL BISULFATE
     Dosage: TABLET, 75 MG ,CLOPIDOGREL TABLET 75MG / BRAND NAME NOT SPECIFIED,THERAPY START DATE ASKU, THERAPY E

REACTIONS (1)
  - Weight increased [Not Recovered/Not Resolved]
